FAERS Safety Report 10237840 (Version 1)
Quarter: 2014Q2

REPORT INFORMATION
  Report Type: Report from Study
  Country: US (occurrence: US)
  Receive Date: 20140616
  Receipt Date: 20140616
  Transmission Date: 20141212
  Serious: Yes (Other)
  Sender: FDA-Public Use
  Company Number: US-JNJFOC-20140605278

PATIENT
  Age: 54 Year
  Sex: Female
  Weight: 85.73 kg

DRUGS (16)
  1. INVOKANA [Suspect]
     Indication: TYPE 2 DIABETES MELLITUS
     Route: 048
     Dates: start: 201309, end: 201309
  2. INVOKANA [Suspect]
     Indication: TYPE 2 DIABETES MELLITUS
     Route: 048
     Dates: start: 201401, end: 201401
  3. INVOKANA [Suspect]
     Indication: TYPE 2 DIABETES MELLITUS
     Route: 048
     Dates: start: 201402, end: 201402
  4. INVOKANA [Suspect]
     Indication: TYPE 2 DIABETES MELLITUS
     Route: 048
     Dates: start: 2014, end: 2014
  5. INVOKANA [Suspect]
     Indication: TYPE 2 DIABETES MELLITUS
     Route: 048
     Dates: start: 2013, end: 2013
  6. LOTREL [Concomitant]
     Indication: HYPERTENSION
     Route: 048
  7. NEURONTIN [Concomitant]
     Indication: NEUROPATHY PERIPHERAL
     Route: 048
  8. METHOTREXATE [Concomitant]
     Indication: RHEUMATOID ARTHRITIS
     Route: 048
  9. METFORMIN [Concomitant]
     Indication: DIABETES MELLITUS
     Route: 048
     Dates: start: 2009
  10. AMARYL [Concomitant]
     Indication: DIABETES MELLITUS
     Dosage: WITH METFORMIN
     Route: 048
     Dates: start: 2009
  11. DOXYCYCLINE HYCLATE [Concomitant]
     Indication: FURUNCLE
     Route: 048
  12. ZOCOR [Concomitant]
     Indication: BLOOD CHOLESTEROL
     Route: 048
  13. ATENOLOL [Concomitant]
     Indication: HYPERTENSION
     Dosage: AT BEDTIME
     Route: 048
  14. HYDROCODONE/APAP [Concomitant]
     Indication: PAIN
     Route: 048
     Dates: start: 2014
  15. PREVACID [Concomitant]
     Indication: GASTRIC DISORDER
     Route: 048
  16. FLONASE [Concomitant]
     Indication: SEASONAL ALLERGY

REACTIONS (4)
  - Glycosylated haemoglobin increased [Unknown]
  - Vulvovaginal mycotic infection [Not Recovered/Not Resolved]
  - Abnormal loss of weight [Unknown]
  - Drug dose omission [Not Recovered/Not Resolved]
